FAERS Safety Report 26070267 (Version 1)
Quarter: 2025Q4

REPORT INFORMATION
  Report Type: Spontaneous
  Country: PA (occurrence: PA)
  Receive Date: 20251120
  Receipt Date: 20251120
  Transmission Date: 20260118
  Serious: Yes (Other)
  Sender: SANDOZ
  Company Number: PA-002147023-NVSC2023PA147883

PATIENT
  Sex: Female

DRUGS (3)
  1. ANASTROZOLE [Suspect]
     Active Substance: ANASTROZOLE
     Indication: Product used for unknown indication
     Dosage: UNK
     Route: 065
  2. KISQALI [Suspect]
     Active Substance: RIBOCICLIB SUCCINATE
     Dosage: 200 MG, QD (1 TABLET)
     Route: 048
     Dates: start: 2018
  3. KISQALI [Suspect]
     Active Substance: RIBOCICLIB SUCCINATE
     Indication: Breast cancer
     Dosage: 3 DOSAGE FORM, QD
     Route: 048
     Dates: start: 201812

REACTIONS (8)
  - Blindness [Not Recovered/Not Resolved]
  - Glaucoma [Unknown]
  - Cataract [Unknown]
  - Metastases to lung [Unknown]
  - Metastases to thorax [Unknown]
  - Metastases to breast [Unknown]
  - Visual impairment [Unknown]
  - Decreased immune responsiveness [Unknown]
